FAERS Safety Report 10176216 (Version 1)
Quarter: 2014Q2

REPORT INFORMATION
  Report Type: Spontaneous
  Country: GB (occurrence: GB)
  Receive Date: 20140516
  Receipt Date: 20140516
  Transmission Date: 20141212
  Serious: Yes (Disabling, Other)
  Sender: FDA-Public Use
  Company Number: GB-ELI_LILLY_AND_COMPANY-GB201405001067

PATIENT
  Age: 32 Year
  Sex: Female
  Weight: 55 kg

DRUGS (3)
  1. STRATTERA [Suspect]
     Indication: ATTENTION DEFICIT/HYPERACTIVITY DISORDER
     Dosage: 80 MG, QD
     Route: 048
     Dates: start: 20130315, end: 20131107
  2. THYROXINE [Concomitant]
     Indication: HYPOTHYROIDISM
     Dosage: 125 UG, QD
     Route: 065
  3. INTRAUTERINE CONTRACEPTIVE DEVICE [Concomitant]
     Dosage: COPPER

REACTIONS (4)
  - Weight increased [Recovered/Resolved with Sequelae]
  - Visual acuity reduced [Recovered/Resolved with Sequelae]
  - Memory impairment [Recovering/Resolving]
  - Constipation [Unknown]
